FAERS Safety Report 8940822 (Version 1)
Quarter: 2012Q4

REPORT INFORMATION
  Report Type: 
  Country: FR (occurrence: FR)
  Receive Date: 20121203
  Receipt Date: 20121203
  Transmission Date: 20130627
  Serious: Yes (Hospitalization)
  Sender: FDA-Public Use
  Company Number: FR-ACTELION-A-CH2012-75285

PATIENT
  Age: 64 Year
  Sex: Female

DRUGS (7)
  1. TRACLEER [Suspect]
     Indication: PULMONARY ARTERIAL HYPERTENSION
     Dosage: 125 mg, bid
     Route: 048
     Dates: start: 201206
  2. HALAVEN [Suspect]
  3. CAELYX [Suspect]
     Dosage: 40 mg/m2, UNK
     Route: 017
     Dates: start: 20110505, end: 201201
  4. COUMADINE [Suspect]
     Dosage: 4 mg, qd
     Route: 048
     Dates: start: 20120813
  5. CARDENSIEL [Suspect]
     Dosage: 2.5 mg, qd
     Route: 048
     Dates: start: 201206
  6. ZOPHREN [Suspect]
     Dosage: 8 mg, tid
     Route: 048
     Dates: start: 20120821
  7. PRIMPERAN [Suspect]
     Dosage: UNK
     Route: 048
     Dates: start: 20120821

REACTIONS (9)
  - Cardiogenic shock [Recovering/Resolving]
  - Right ventricular failure [Recovering/Resolving]
  - Cardiac failure [Recovering/Resolving]
  - Dyspnoea [Recovering/Resolving]
  - Cardiac murmur [Recovering/Resolving]
  - Oedema peripheral [Recovering/Resolving]
  - Bundle branch block right [Recovering/Resolving]
  - Renal failure acute [Unknown]
  - Asthenia [Recovering/Resolving]
